FAERS Safety Report 25825696 (Version 1)
Quarter: 2025Q3

REPORT INFORMATION
  Report Type: Report from Study
  Country: EU (occurrence: EU)
  Receive Date: 20250919
  Receipt Date: 20250919
  Transmission Date: 20251020
  Serious: Yes (Other)
  Sender: MYLAN
  Company Number: EU-JNJFOC-20211059746

PATIENT
  Age: 66 Year
  Sex: Male

DRUGS (4)
  1. DEXAMETHASONE [Suspect]
     Active Substance: DEXAMETHASONE
     Indication: Plasma cell myeloma
     Dosage: 40 MILLIGRAM, Q2W (PER DOSE 4 DOSES/WEEK 2 WEEKS/CYCLE)
     Dates: end: 20200618
  2. VELCADE [Suspect]
     Active Substance: BORTEZOMIB
     Indication: Plasma cell myeloma
     Dosage: 2.5 MILLIGRAM, Q2W (PER DOSE 2 DOSES/WEEK 2 WEEKS/CYCLE)
     Dates: end: 20200618
  3. THALIDOMIDE [Suspect]
     Active Substance: THALIDOMIDE
     Indication: Plasma cell myeloma
     Dosage: 100 MILLIGRAM, Q3W (PER DOSE 7 DOSES/WEEK 3 WEEKS/CYCLE)
     Dates: end: 20200618
  4. MELPHALAN [Suspect]
     Active Substance: MELPHALAN
     Indication: Plasma cell myeloma
     Dosage: 200 MILLIGRAM/SQ. METER, QW (PER DOSE 1 DOSE/WEEK 1 WEEK/CYCLE)
     Dates: end: 20200618

REACTIONS (4)
  - Neutropenia [Unknown]
  - Therapy cessation [Recovered/Resolved]
  - Product use issue [Unknown]
  - Off label use [Unknown]

NARRATIVE: CASE EVENT DATE: 20200106
